FAERS Safety Report 9805251 (Version 2)
Quarter: 2014Q1

REPORT INFORMATION
  Report Type: Spontaneous
  Country: US (occurrence: US)
  Receive Date: 20140109
  Receipt Date: 20140109
  Transmission Date: 20141002
  Serious: Yes (Death, Hospitalization, Disabling)
  Sender: FDA-Public Use
  Company Number: US-CELGENEUS-163-20785-13100444

PATIENT
  Age: 93 Year
  Sex: Female

DRUGS (3)
  1. THALOMID [Suspect]
     Indication: PLASMA CELL MYELOMA
     Dosage: 100 MILLIGRAM
     Route: 048
     Dates: start: 20090412
  2. THALOMID [Suspect]
     Dosage: 150-100MG
     Route: 048
     Dates: start: 200906
  3. THALOMID [Suspect]
     Dosage: 100 MILLIGRAM
     Route: 048
     Dates: start: 201306, end: 20130718

REACTIONS (2)
  - Renal failure [Fatal]
  - Cholecystitis [Not Recovered/Not Resolved]
